FAERS Safety Report 8812502 (Version 1)
Quarter: 2012Q4

REPORT INFORMATION
  Report Type: 
  Country: US (occurrence: US)
  Receive Date: 20120927
  Receipt Date: 20120927
  Transmission Date: 20130627
  Serious: No
  Sender: FDA-Public Use
  Company Number: US-B.I. PHARMACEUTICALS,INC./RIDGEFIELD-2012-BP-23292BP

PATIENT
  Sex: Male

DRUGS (9)
  1. SPIRIVA [Suspect]
     Indication: LUNG NEOPLASM MALIGNANT
     Dosage: 18 mcg
     Route: 055
     Dates: start: 20120807
  2. SPIRIVA [Suspect]
     Route: 048
     Dates: start: 20120924, end: 20120924
  3. FLOMAX CAPSULES [Suspect]
     Indication: NEPHROLITHIASIS
     Dosage: 0.4 mg
     Route: 048
     Dates: start: 201206
  4. SYMBICORT [Concomitant]
     Indication: LUNG NEOPLASM MALIGNANT
     Dosage: 4 puf
     Route: 055
     Dates: start: 20120807
  5. FENTANYL [Concomitant]
     Indication: PAIN
     Dates: start: 20120807
  6. OXYCODONE [Concomitant]
     Indication: PAIN
     Route: 048
     Dates: start: 20120807
  7. SERTRALINE [Concomitant]
     Indication: DEPRESSION
     Dosage: 50 mg
     Route: 048
     Dates: start: 20120911
  8. CLONAZEPAM [Concomitant]
     Indication: ANXIETY
     Dates: start: 20120911
  9. METOCLOPRAMIDE [Concomitant]
     Dosage: 30 mg
     Route: 048
     Dates: start: 201208

REACTIONS (1)
  - Incorrect route of drug administration [Recovered/Resolved]
